FAERS Safety Report 4365925-4 (Version None)
Quarter: 2004Q2

REPORT INFORMATION
  Report Type: 
  Country: None (occurrence: None)
  Receive Date: 20040520
  Receipt Date: 20040517
  Transmission Date: 20050107
  Serious: Yes (Hospitalization)
  Sender: FDA-Public Use
  Company Number: IT-JNJFOC-20040503492

PATIENT
  Age: 38 Year
  Sex: Female

DRUGS (1)
  1. ORTHO EVRA [Suspect]
     Indication: CONTRACEPTION
     Dosage: 1 DOSE(S), 3 IN 4 WEEK , TRANSDERMAL
     Route: 062
     Dates: start: 20040420, end: 20040425

REACTIONS (4)
  - DIPLOPIA [None]
  - DYSARTHRIA [None]
  - HEADACHE [None]
  - VERTIGO [None]
